FAERS Safety Report 12183581 (Version 1)
Quarter: 2016Q1

REPORT INFORMATION
  Report Type: Spontaneous
  Country: US (occurrence: US)
  Receive Date: 20160316
  Receipt Date: 20160316
  Transmission Date: 20160526
  Serious: No
  Sender: FDA-Public Use
  Company Number: US-PFIZER INC-2016104314

PATIENT
  Sex: Female
  Weight: 73.47 kg

DRUGS (3)
  1. CHANTIX [Suspect]
     Active Substance: VARENICLINE TARTRATE
     Indication: SMOKING CESSATION THERAPY
     Dosage: UNK
  2. BUSPIRONE [Concomitant]
     Active Substance: BUSPIRONE HYDROCHLORIDE
     Indication: ANXIETY
     Dosage: 10MG TABLET, 15MG IN THE MORNING AND 15MG AT NIGHT, BY MOUTH, DAILY
     Route: 048
  3. CYMBALTA [Concomitant]
     Active Substance: DULOXETINE HYDROCHLORIDE
     Indication: NERVE INJURY
     Dosage: 60 MG, DAILY
     Route: 048

REACTIONS (2)
  - Dry mouth [Recovered/Resolved]
  - Abnormal dreams [Recovered/Resolved]
